FAERS Safety Report 24893091 (Version 1)
Quarter: 2025Q1

REPORT INFORMATION
  Report Type: Report from Study
  Country: ES (occurrence: ES)
  Receive Date: 20250128
  Receipt Date: 20250128
  Transmission Date: 20250409
  Serious: Yes (Other)
  Sender: ABBVIE
  Company Number: ES-JNJFOC-20250161556

PATIENT

DRUGS (1)
  1. IMBRUVICA [Suspect]
     Active Substance: IBRUTINIB
     Indication: Chronic lymphocytic leukaemia
     Route: 048
     Dates: start: 201901, end: 202401

REACTIONS (7)
  - Haematotoxicity [Unknown]
  - Anaemia [Unknown]
  - Atrial fibrillation [Unknown]
  - Pneumonia [Unknown]
  - Haemorrhage [Unknown]
  - Infection [Unknown]
  - Hypertension [Unknown]
